FAERS Safety Report 20087844 (Version 2)
Quarter: 2021Q4

REPORT INFORMATION
  Report Type: Spontaneous
  Country: PT (occurrence: PT)
  Receive Date: 20211118
  Receipt Date: 20211210
  Transmission Date: 20220303
  Serious: Yes (Other)
  Sender: FDA-Public Use
  Company Number: PT-AMERICAN REGENT INC-2021003039

PATIENT
  Age: 50 Year
  Sex: Female
  Weight: 93 kg

DRUGS (3)
  1. FERINJECT [Suspect]
     Active Substance: FERRIC CARBOXYMALTOSE
     Indication: Iron deficiency anaemia
     Dosage: 1 GRAM, 1 IN 1 TOTAL
     Route: 042
     Dates: start: 20210830, end: 20210830
  2. AMLODIPINE [Concomitant]
     Active Substance: AMLODIPINE BESYLATE
     Indication: Hypertension
     Dosage: 5 MILLIGRAM
     Route: 048
  3. PROGESTERONE [Concomitant]
     Active Substance: PROGESTERONE
     Indication: Product used for unknown indication
     Dosage: 200 MG, 1 IN 1 D
     Route: 065

REACTIONS (1)
  - Venous thrombosis [Not Recovered/Not Resolved]

NARRATIVE: CASE EVENT DATE: 20210831
